FAERS Safety Report 24258870 (Version 1)
Quarter: 2024Q3

REPORT INFORMATION
  Report Type: Spontaneous
  Country: AU (occurrence: AU)
  Receive Date: 20240828
  Receipt Date: 20240828
  Transmission Date: 20241016
  Serious: Yes (Life-Threatening, Hospitalization)
  Sender: SANDOZ
  Company Number: AU-002147023-NVSC2022AU083741

PATIENT
  Age: 2 Year
  Sex: Female
  Weight: 16 kg

DRUGS (3)
  1. AZATHIOPRINE [Suspect]
     Active Substance: AZATHIOPRINE
     Indication: Product used for unknown indication
     Dosage: UNK
     Route: 065
  2. ELTROMBOPAG [Suspect]
     Active Substance: ELTROMBOPAG
     Indication: Immune thrombocytopenia
     Dosage: 75 MG, QD
     Route: 048
     Dates: start: 20211007, end: 20220304
  3. RITUXIMAB [Suspect]
     Active Substance: RITUXIMAB
     Indication: Product used for unknown indication
     Dosage: UNK
     Route: 065

REACTIONS (9)
  - Pancreatitis [Recovered/Resolved]
  - Encephalopathy [Recovered/Resolved]
  - Hepatic function abnormal [Recovered/Resolved]
  - Hepatomegaly [Recovered/Resolved]
  - Hypoglycaemia [Recovered/Resolved]
  - Coagulopathy [Recovered/Resolved]
  - Hypersensitivity [Unknown]
  - Platelet count decreased [Unknown]
  - Drug ineffective [Unknown]

NARRATIVE: CASE EVENT DATE: 20220305
